FAERS Safety Report 14579079 (Version 3)
Quarter: 2018Q1

REPORT INFORMATION
  Report Type: Spontaneous
  Country: IT (occurrence: IT)
  Receive Date: 20180227
  Receipt Date: 20180301
  Transmission Date: 20180509
  Serious: Yes (Hospitalization, Other)
  Sender: FDA-Public Use
  Company Number: IT-TEVA-2018-IT-861113

PATIENT
  Age: 59 Year
  Sex: Female

DRUGS (9)
  1. HYDROCHLOROTHIAZIDE. [Interacting]
     Active Substance: HYDROCHLOROTHIAZIDE
     Dosage: 50 MILLIGRAM DAILY;
     Route: 065
  2. CALCIUM CARBONATE. [Interacting]
     Active Substance: CALCIUM CARBONATE
     Dosage: 3000 MILLIGRAM DAILY;
     Route: 065
  3. LEVOTHYROXINE. [Concomitant]
     Active Substance: LEVOTHYROXINE
     Indication: HYPOTHYROIDISM
     Dosage: 125 MICROGRAM DAILY;
     Route: 065
  4. CALCITRIOL. [Suspect]
     Active Substance: CALCITRIOL
     Indication: HYPOPARATHYROIDISM
     Dosage: 1 MICROGRAM DAILY;
     Route: 048
  5. CALCITRIOL. [Interacting]
     Active Substance: CALCITRIOL
     Indication: HYPOPARATHYROIDISM
     Dosage: 0.5 MICROG/DAY
     Route: 048
  6. TORASEMIDE [Suspect]
     Active Substance: TORSEMIDE
     Route: 065
  7. FUROSEMIDE. [Suspect]
     Active Substance: FUROSEMIDE
     Route: 065
  8. WARFARIN [Concomitant]
     Active Substance: WARFARIN
     Indication: PROPHYLAXIS
     Route: 048
  9. POTASSIUM CHLORIDE. [Concomitant]
     Active Substance: POTASSIUM CHLORIDE
     Dosage: 1800 MILLIGRAM DAILY;
     Route: 048

REACTIONS (5)
  - Blood potassium decreased [Recovered/Resolved]
  - Milk-alkali syndrome [Recovered/Resolved]
  - Drug interaction [Recovered/Resolved]
  - Tetany [Unknown]
  - Fall [Unknown]
